FAERS Safety Report 6052549-6 (Version None)
Quarter: 2009Q1

REPORT INFORMATION
  Report Type: 
  Country: None (occurrence: None)
  Receive Date: 20090116
  Receipt Date: 20090102
  Transmission Date: 20090719
  Serious: Yes (Other)
  Sender: FDA-Public Use
  Company Number: 14426035

PATIENT
  Sex: Female

DRUGS (5)
  1. EMSAM [Suspect]
     Dosage: 6 MILLIGRAM, 24 HOUR TD
     Route: 062
     Dates: start: 20081128
  2. ADDERALL 10 [Suspect]
  3. DARVOCET [Suspect]
  4. GEODON [Suspect]
  5. KLONOPIN [Concomitant]

REACTIONS (9)
  - APPLICATION SITE ERYTHEMA [None]
  - APPLICATION SITE IRRITATION [None]
  - APPLICATION SITE SWELLING [None]
  - DRUG INTERACTION [None]
  - HYPERTENSIVE CRISIS [None]
  - MUSCULOSKELETAL STIFFNESS [None]
  - PAIN IN JAW [None]
  - PALPITATIONS [None]
  - PANIC ATTACK [None]
